FAERS Safety Report 25890966 (Version 1)
Quarter: 2025Q4

REPORT INFORMATION
  Report Type: Spontaneous
  Country: RU (occurrence: RU)
  Receive Date: 20251007
  Receipt Date: 20251007
  Transmission Date: 20260117
  Serious: Yes (Other)
  Sender: BAYER HEALTHCARE PHARMACEUTICALS INC.
  Company Number: None

PATIENT
  Age: 73 Year
  Sex: Male
  Weight: 90 kg

DRUGS (10)
  1. ULTRAVIST [Suspect]
     Active Substance: IOPROMIDE
     Dosage: 50 ML, ONCE,18500 MG IODINE 370 MG/ML, 50 ML
     Route: 040
     Dates: start: 20250923, end: 20250923
  2. ULTRAVIST [Suspect]
     Active Substance: IOPROMIDE
     Dosage: 90 ML, ONCE,IODINE 370 MG/ML,33,300 MG
     Route: 040
     Dates: start: 20250923, end: 20250923
  3. Sotalol canon [Concomitant]
     Dosage: 160 MG,DOSAGE FREQUENCY 2 DAYS
     Route: 048
     Dates: start: 20250922
  4. OMEPRAZOLE [Concomitant]
     Active Substance: OMEPRAZOLE
     Dosage: 20 MG, QD
     Route: 048
     Dates: start: 20250922
  5. ATORVASTATIN [Concomitant]
     Active Substance: ATORVASTATIN
     Dosage: 20 MG, QD
     Route: 048
     Dates: start: 20250922
  6. ELIQUIS [Concomitant]
     Active Substance: APIXABAN
     Dosage: 5 MG,DOSAGE FREQUENCY 2 DAYS
     Route: 048
     Dates: start: 20250922
  7. LOSARTAN [Concomitant]
     Active Substance: LOSARTAN
     Dosage: 50 MG, QD
     Route: 048
     Dates: start: 20250923
  8. Ethylmethylhydroxypyridine succinate [Concomitant]
     Dosage: 250 MG, QD,5 MG/ML - 5 ML
     Route: 041
     Dates: start: 20250923
  9. Gleacer [Concomitant]
     Dosage: 1000 MG, QD,250 MG/ML - 4 ML
     Route: 041
     Dates: start: 20250923
  10. SALINE [Concomitant]
     Active Substance: SODIUM CHLORIDE
     Dosage: 100 ML,DOSAGE FREQUENCY 2 DAYS
     Route: 041
     Dates: start: 20250923

REACTIONS (3)
  - Urticaria [Recovered/Resolved]
  - Hyperaemia [Recovered/Resolved]
  - Hypertension [Recovered/Resolved]

NARRATIVE: CASE EVENT DATE: 20250923
